FAERS Safety Report 11391974 (Version 1)
Quarter: 2015Q3

REPORT INFORMATION
  Report Type: Spontaneous
  Country: GB (occurrence: None)
  Receive Date: 20150814
  Receipt Date: 20150814
  Transmission Date: 20151125
  Serious: Yes (Hospitalization)
  Sender: FDA-Public Use
  Company Number: GB2015K4832SPO

PATIENT
  Age: 85 Year
  Sex: Female
  Weight: 74 kg

DRUGS (10)
  1. CANDESARTAN [Suspect]
     Active Substance: CANDESARTAN
     Route: 048
  2. PARACETAMOL WORLD (PARACETAMOL) UNKNOWN [Suspect]
     Active Substance: ACETAMINOPHEN
     Route: 048
  3. ZOPICLONE [Suspect]
     Active Substance: ZOPICLONE
  4. SODIUM BICARBONATE. [Suspect]
     Active Substance: SODIUM BICARBONATE
  5. SENNA [Concomitant]
     Active Substance: SENNA LEAF\SENNOSIDES\SENNOSIDES A AND B
  6. LEVOTHYROXINE. [Suspect]
     Active Substance: LEVOTHYROXINE
  7. SIMVASTATIN WORLD (SIMVASTATIN) [Suspect]
     Active Substance: SIMVASTATIN
     Route: 048
  8. LANSOPRAZOLE GENERIC (LANSOPRAZOLE) UNKNOWN [Suspect]
     Active Substance: LANSOPRAZOLE
     Route: 048
  9. SERTRALINE [Suspect]
     Active Substance: SERTRALINE HYDROCHLORIDE
     Route: 048
  10. CLOPIDOGREL [Suspect]
     Active Substance: CLOPIDOGREL BISULFATE
     Route: 048

REACTIONS (3)
  - Overdose [None]
  - Blood creatine phosphokinase increased [None]
  - Circulatory collapse [None]

NARRATIVE: CASE EVENT DATE: 20150724
